FAERS Safety Report 25795264 (Version 1)
Quarter: 2025Q3

REPORT INFORMATION
  Report Type: Report from Study
  Country: CA (occurrence: CA)
  Receive Date: 20250912
  Receipt Date: 20250912
  Transmission Date: 20251021
  Serious: Yes (Other)
  Sender: CELLTRION
  Company Number: CA-CELLTRION INC.-2025CA032247

PATIENT

DRUGS (24)
  1. RITUXIMAB [Suspect]
     Active Substance: RITUXIMAB
     Indication: Scleroderma
     Route: 042
  2. RITUXIMAB [Suspect]
     Active Substance: RITUXIMAB
     Indication: Arthritis
  3. ASPIRIN [Concomitant]
     Active Substance: ASPIRIN
  4. ACRIVASTINE [Concomitant]
     Active Substance: ACRIVASTINE
     Indication: Premedication
     Route: 048
  5. AMITRIPTYLINE [Concomitant]
     Active Substance: AMITRIPTYLINE
  6. AMLODIPINE [Concomitant]
     Active Substance: AMLODIPINE BESYLATE
     Route: 065
  7. AMLODIPINE BESYLATE [Concomitant]
     Active Substance: AMLODIPINE BESYLATE
  8. BISOPROLOL FUMARATE [Concomitant]
     Active Substance: BISOPROLOL FUMARATE
  9. BUDESONIDE\FORMOTEROL FUMARATE [Concomitant]
     Active Substance: BUDESONIDE\FORMOTEROL FUMARATE
  10. CALCIUM [Concomitant]
     Active Substance: CALCIUM
  11. DEXILANT [Concomitant]
     Active Substance: DEXLANSOPRAZOLE
  12. HYDROXYCHLOROQUINE [Concomitant]
     Active Substance: HYDROXYCHLOROQUINE
  13. HYDROXYCHLOROQUINE SULFATE [Concomitant]
     Active Substance: HYDROXYCHLOROQUINE SULFATE
     Route: 065
  14. METHYLPREDNISOLONE SODIUM SUCCINATE [Concomitant]
     Active Substance: METHYLPREDNISOLONE SODIUM SUCCINATE
     Indication: Premedication
     Route: 042
  15. MORPHINE SULFATE [Concomitant]
     Active Substance: MORPHINE SULFATE
     Indication: Depression
  16. MYCOPHENOLATE MOFETIL [Concomitant]
     Active Substance: MYCOPHENOLATE MOFETIL
     Route: 048
  17. NIFEDIPINE [Concomitant]
     Active Substance: NIFEDIPINE
     Route: 065
  18. PREDNISONE [Concomitant]
     Active Substance: PREDNISONE
  19. RISEDRONATE SODIUM [Concomitant]
     Active Substance: RISEDRONATE SODIUM
  20. ROSUVASTATIN CALCIUM [Concomitant]
     Active Substance: ROSUVASTATIN CALCIUM
  21. ALBUTEROL [Concomitant]
     Active Substance: ALBUTEROL
  22. SERTRALINE [Concomitant]
     Active Substance: SERTRALINE HYDROCHLORIDE
  23. SYNTHROID [Concomitant]
     Active Substance: LEVOTHYROXINE SODIUM
  24. TYLENOL [Concomitant]
     Active Substance: ACETAMINOPHEN
     Indication: Premedication
     Route: 048

REACTIONS (2)
  - Cataract [Unknown]
  - Intentional product use issue [Unknown]
